FAERS Safety Report 21561882 (Version 1)
Quarter: 2022Q4

REPORT INFORMATION
  Report Type: Spontaneous
  Country: US (occurrence: US)
  Receive Date: 20221107
  Receipt Date: 20221107
  Transmission Date: 20230113
  Serious: No
  Sender: FDA-Public Use
  Company Number: US-TEVA-2022-US-2819720

PATIENT
  Sex: Female

DRUGS (1)
  1. COPAXONE [Suspect]
     Active Substance: GLATIRAMER ACETATE
     Indication: Liver disorder
     Dosage: FORM STRENGTH AND ROUTE UNKNOWN
     Route: 065

REACTIONS (2)
  - Rash macular [Unknown]
  - Product use in unapproved indication [Unknown]
